FAERS Safety Report 4289187-1 (Version None)
Quarter: 2004Q1

REPORT INFORMATION
  Report Type: 
  Country: None (occurrence: None)
  Receive Date: 20040115
  Receipt Date: 20030523
  Transmission Date: 20041129
  Serious: Yes (Other)
  Sender: FDA-Public Use
  Company Number: 201020

PATIENT
  Sex: Female

DRUGS (1)
  1. ACTIVASE [Suspect]
     Indication: THROMBOSIS
     Dates: start: 20030523, end: 20030523

REACTIONS (1)
  - CEREBRAL HAEMORRHAGE [None]
